FAERS Safety Report 10044837 (Version 3)
Quarter: 2014Q2

REPORT INFORMATION
  Report Type: Spontaneous
  Country: JP (occurrence: JP)
  Receive Date: 20140328
  Receipt Date: 20140519
  Transmission Date: 20141212
  Serious: Yes (Hospitalization)
  Sender: FDA-Public Use
  Company Number: JP-EISAI INC-E3810-06975-SPO-JP

PATIENT
  Age: 80 Year
  Sex: Male
  Weight: 67 kg

DRUGS (13)
  1. RABECURE [Suspect]
     Indication: GASTRIC CANCER
     Dosage: UNKNOWN
     Route: 048
     Dates: start: 20140315, end: 20140318
  2. RABECURE [Suspect]
     Indication: HELICOBACTER INFECTION
  3. SAWACILLIN [Suspect]
     Indication: GASTRIC CANCER
     Dosage: UNKNOWN
     Route: 048
     Dates: start: 20140315, end: 20140318
  4. SAWACILLIN [Suspect]
     Indication: HELICOBACTER INFECTION
  5. CLARITH [Suspect]
     Indication: GASTRIC CANCER
     Dosage: UNKNOWN
     Route: 048
     Dates: start: 20140315, end: 20140318
  6. CLARITH [Suspect]
     Indication: HELICOBACTER INFECTION
  7. METHYCOBAL [Concomitant]
     Indication: PRODUCT USED FOR UNKNOWN INDICATION
     Route: 048
  8. CRAVIT [Concomitant]
     Indication: PRODUCT USED FOR UNKNOWN INDICATION
     Dosage: UNKNOWN
     Route: 065
  9. DICLOD [Concomitant]
     Indication: PRODUCT USED FOR UNKNOWN INDICATION
     Dosage: UNKNOWN
     Route: 065
  10. TRINOSIN [Concomitant]
     Indication: PRODUCT USED FOR UNKNOWN INDICATION
     Route: 048
  11. ROHYPNOL [Concomitant]
     Indication: PRODUCT USED FOR UNKNOWN INDICATION
     Route: 048
  12. BIOFERMIN [Concomitant]
     Indication: PRODUCT USED FOR UNKNOWN INDICATION
     Route: 048
     Dates: start: 20140314
  13. GASMOTIN [Concomitant]
     Indication: PRODUCT USED FOR UNKNOWN INDICATION
     Route: 048
     Dates: start: 20140314

REACTIONS (2)
  - Haematochezia [Recovering/Resolving]
  - Diarrhoea [Recovered/Resolved]
